FAERS Safety Report 12139785 (Version 2)
Quarter: 2016Q2

REPORT INFORMATION
  Report Type: Spontaneous
  Country: US (occurrence: US)
  Receive Date: 20160303
  Receipt Date: 20160408
  Transmission Date: 20160815
  Serious: No
  Sender: FDA-Public Use
  Company Number: US-JNJFOC-20160210564

PATIENT
  Sex: Female

DRUGS (1)
  1. RAZADYNE [Suspect]
     Active Substance: GALANTAMINE HYDROBROMIDE
     Indication: DEMENTIA ALZHEIMER^S TYPE
     Route: 048
     Dates: start: 2008

REACTIONS (3)
  - Adverse drug reaction [Unknown]
  - Stereotypy [Not Recovered/Not Resolved]
  - Memory impairment [Not Recovered/Not Resolved]
